FAERS Safety Report 7890127-4 (Version None)
Quarter: 2011Q4

REPORT INFORMATION
  Report Type: 
  Country: None (occurrence: None)
  Receive Date: 20111103
  Receipt Date: 20111028
  Transmission Date: 20120403
  Serious: Yes (Hospitalization)
  Sender: FDA-Public Use
  Company Number: SE-ABBOTT-11P-150-0866042-00

PATIENT
  Sex: Female
  Weight: 72 kg

DRUGS (24)
  1. PARAFLEX [Concomitant]
     Indication: HYPOTONIA
     Dosage: 1 IN 1 D, AS NEEDED
     Route: 048
  2. POTASSIUM CHLORIDE [Concomitant]
     Indication: BLOOD POTASSIUM DECREASED
     Route: 048
     Dates: start: 20081122
  3. FUROSEMIDE [Concomitant]
     Indication: DIURETIC THERAPY
     Dosage: SWITCH TO ANOTHER BRAND
     Route: 048
     Dates: start: 20110914
  4. SCHERIPROCT [Concomitant]
     Indication: HAEMORRHOIDS
  5. OMEPRAZOL BLUEFISH [Concomitant]
     Indication: GASTRIC ULCER
     Dosage: SWITCH TO ANOTHER BRAND
     Dates: start: 20090811, end: 20110901
  6. FUROSEMIDE [Concomitant]
     Indication: OEDEMA
  7. OMEPRAZOL TEVA [Concomitant]
     Indication: PROPHYLAXIS
  8. LAKTULOS [Concomitant]
     Indication: CONSTIPATION
     Route: 048
  9. EMGESAN [Concomitant]
     Indication: VASOSPASM
     Route: 048
     Dates: start: 20090811
  10. CILAXORAL [Concomitant]
     Indication: CONSTIPATION
     Route: 048
  11. FUROSEMIDE [Concomitant]
     Indication: DIURETIC THERAPY
     Dosage: SWTICH TO ANOTHER BRAND
     Dates: start: 20071115, end: 20110901
  12. SYMBICORT [Concomitant]
     Indication: BRONCHIAL OBSTRUCTION
     Route: 055
  13. ACETAMINOPHEN W/ CODEINE [Concomitant]
     Indication: PAIN
     Dosage: 1 IN 1 D, AS NEEDED
     Route: 048
  14. OMEPRAZOL BLUEFISH [Concomitant]
     Indication: PROPHYLAXIS
  15. ALLOPURINOL [Concomitant]
     Indication: GOUT
  16. LIPITOR [Concomitant]
     Indication: HYPERCHOLESTEROLAEMIA
     Route: 048
     Dates: start: 20091217
  17. OMEPRAZOL TEVA [Concomitant]
     Indication: GASTRIC ULCER
     Dates: start: 20110914
  18. BRICANYL [Concomitant]
     Indication: BRONCHIAL OBSTRUCTION
     Route: 055
  19. PARAFLEX [Concomitant]
     Indication: PAIN
  20. NOVORAPID [Concomitant]
     Indication: DIABETES MELLITUS
     Route: 058
     Dates: start: 20061205
  21. ALLOPURINOL [Concomitant]
     Indication: PROPHYLAXIS
     Route: 048
     Dates: start: 20061205
  22. INOLAXOL [Concomitant]
     Indication: CONSTIPATION
     Route: 048
  23. ZEMPLAR [Suspect]
     Indication: RENAL FAILURE CHRONIC
     Dosage: DAILY
     Route: 048
     Dates: start: 20110201
  24. INSULATARD NPH HUMAN [Concomitant]
     Indication: DIABETES MELLITUS
     Dosage: 25 IE + 0 + 10 IE
     Route: 058
     Dates: start: 20061205

REACTIONS (3)
  - APHAGIA [None]
  - FATIGUE [None]
  - DIVERTICULITIS [None]
